FAERS Safety Report 21381960 (Version 1)
Quarter: 2022Q3

REPORT INFORMATION
  Report Type: Spontaneous
  Country: CN (occurrence: CN)
  Receive Date: 20220927
  Receipt Date: 20220927
  Transmission Date: 20221026
  Serious: Yes (Other)
  Sender: FDA-Public Use
  Company Number: CN-PFIZER INC-PV202200070052

PATIENT
  Age: 4 Year
  Sex: Male
  Weight: 14.8 kg

DRUGS (3)
  1. CYTARABINE [Suspect]
     Active Substance: CYTARABINE
     Indication: Acute leukaemia
     Dosage: 0.035 G, 1X/DAY
     Route: 037
     Dates: start: 20220916, end: 20220916
  2. PEGASPARGASE [Suspect]
     Active Substance: PEGASPARGASE
     Indication: Acute leukaemia
     Dosage: 1.6 ML, 1X/DAY
     Route: 030
     Dates: start: 20220916, end: 20220916
  3. SODIUM CHLORIDE [Concomitant]
     Active Substance: SODIUM CHLORIDE
     Indication: Vehicle solution use
     Dosage: 3.5 ML, 1X/DAY
     Route: 037
     Dates: start: 20220916, end: 20220916

REACTIONS (1)
  - Blood fibrinogen decreased [Not Recovered/Not Resolved]

NARRATIVE: CASE EVENT DATE: 20220917
